FAERS Safety Report 9351215 (Version 1)
Quarter: 2013Q2

REPORT INFORMATION
  Report Type: Spontaneous
  Country: FR (occurrence: FR)
  Receive Date: 20130617
  Receipt Date: 20130617
  Transmission Date: 20140414
  Serious: Yes (Other)
  Sender: FDA-Public Use
  Company Number: FR-PFIZER INC-2013180152

PATIENT
  Age: 81 Year
  Sex: Male

DRUGS (3)
  1. CORDARONE [Suspect]
     Indication: ATRIAL FIBRILLATION
     Dosage: 200 MG, DAILY
     Route: 048
     Dates: start: 20130408, end: 20130418
  2. PREVISCAN [Suspect]
     Indication: ATRIAL FIBRILLATION
     Dosage: 20 MG, DAILY
     Route: 048
     Dates: start: 20130408, end: 20130418
  3. OGAST [Suspect]
     Dosage: 1 DF, DAILY (1 UNIT DAILY)
     Route: 048
     Dates: start: 20130408, end: 20130418

REACTIONS (4)
  - Rash generalised [Recovered/Resolved]
  - Hyperthermia [Recovered/Resolved]
  - Diarrhoea [Unknown]
  - Cough [Unknown]
